FAERS Safety Report 21865981 (Version 3)
Quarter: 2023Q2

REPORT INFORMATION
  Report Type: Report from Study
  Country: US (occurrence: US)
  Receive Date: 20230116
  Receipt Date: 20230530
  Transmission Date: 20230722
  Serious: Yes (Other)
  Sender: FDA-Public Use
  Company Number: US-UCBSA-2023001139

PATIENT
  Age: 39 Year
  Sex: Female

DRUGS (2)
  1. CERTOLIZUMAB PEGOL [Suspect]
     Active Substance: CERTOLIZUMAB PEGOL
     Indication: Rheumatoid arthritis
     Dosage: UNK
     Dates: start: 202202, end: 202208
  2. CERTOLIZUMAB PEGOL [Suspect]
     Active Substance: CERTOLIZUMAB PEGOL
     Dosage: 2 INJECTIONS EVERY 4 WEEKS, 400 MG (2 X200 MG/ML)
     Dates: start: 20221219

REACTIONS (8)
  - Bacterial infection [Recovering/Resolving]
  - Rheumatoid arthritis [Recovered/Resolved]
  - Injection site discharge [Not Recovered/Not Resolved]
  - Insurance issue [Unknown]
  - Incorrect dose administered [Unknown]
  - Therapy interrupted [Unknown]
  - Product availability issue [Unknown]
  - Product quality issue [Unknown]

NARRATIVE: CASE EVENT DATE: 20220801
